FAERS Safety Report 6429985-9 (Version None)
Quarter: 2009Q4

REPORT INFORMATION
  Report Type: 
  Country: None (occurrence: None)
  Receive Date: 20091106
  Receipt Date: 20091028
  Transmission Date: 20100525
  Serious: Yes (Other)
  Sender: FDA-Public Use
  Company Number: IL-JNJFOC-20091100146

PATIENT
  Age: 92 Year
  Sex: Female

DRUGS (8)
  1. REMINYL [Suspect]
     Indication: MEMORY IMPAIRMENT
     Route: 065
  2. HOMEOPATHIC MEDICATION (NOS) [Concomitant]
     Route: 065
  3. MOTILIUM [Concomitant]
     Route: 065
  4. AMLODIPINE [Concomitant]
     Route: 065
  5. NORMITEN [Concomitant]
     Route: 065
  6. FAMOTIDINE [Concomitant]
     Route: 065
  7. VITAMIN [Concomitant]
     Route: 065
  8. LOVAZA [Concomitant]
     Route: 065

REACTIONS (3)
  - INAPPROPRIATE SCHEDULE OF DRUG ADMINISTRATION [None]
  - NO ADVERSE EVENT [None]
  - THERAPEUTIC RESPONSE DECREASED [None]
